FAERS Safety Report 11746290 (Version 1)
Quarter: 2015Q4

REPORT INFORMATION
  Report Type: Spontaneous
  Country: US (occurrence: None)
  Receive Date: 20151116
  Receipt Date: 20151116
  Transmission Date: 20160304
  Serious: No
  Sender: FDA-Public Use
  Company Number: None

PATIENT
  Age: 73 Year
  Sex: Female
  Weight: 58.51 kg

DRUGS (7)
  1. ESTRACE [Suspect]
     Active Substance: ESTRADIOL
     Indication: VULVOVAGINAL DISCOMFORT
     Dosage: 1/2 ^ RIBBON OF CREAM; 1-2 TIMES PER WEEK
     Route: 067
     Dates: start: 20141025, end: 20150222
  2. MULTIVITAMIN [Concomitant]
     Active Substance: VITAMINS
  3. VITAMIN D [Concomitant]
     Active Substance: CHOLECALCIFEROL
  4. ESTRACE [Suspect]
     Active Substance: ESTRADIOL
     Indication: PROPHYLAXIS
     Dosage: 1/2 ^ RIBBON OF CREAM; 1-2 TIMES PER WEEK
     Route: 067
     Dates: start: 20141025, end: 20150222
  5. SYNTHROID [Concomitant]
     Active Substance: LEVOTHYROXINE SODIUM
  6. VIT B VITAMIN [Concomitant]
  7. ESTRACE [Suspect]
     Active Substance: ESTRADIOL
     Indication: VULVOVAGINAL PAIN
     Dosage: 1/2 ^ RIBBON OF CREAM; 1-2 TIMES PER WEEK
     Route: 067
     Dates: start: 20141025, end: 20150222

REACTIONS (4)
  - Alopecia [None]
  - Blood thyroid stimulating hormone increased [None]
  - Micturition urgency [None]
  - Increased appetite [None]

NARRATIVE: CASE EVENT DATE: 20150222
